FAERS Safety Report 5002863-8 (Version None)
Quarter: 2006Q2

REPORT INFORMATION
  Report Type: 
  Country: None (occurrence: None)
  Receive Date: 20060512
  Receipt Date: 20060427
  Transmission Date: 20061013
  Serious: Yes (Hospitalization)
  Sender: FDA-Public Use
  Company Number: ES200605000018

PATIENT
  Age: 73 Year
  Sex: Female

DRUGS (6)
  1. OLANZAPINE [Suspect]
     Dosage: 5 MG DAILY (1/D)
  2. ATORVASTATIN CALCIUM [Concomitant]
  3. ENALAPRIL MALEATE [Concomitant]
  4. CITALOPRAM HYDROBROMIDE [Concomitant]
  5. REBOXETINE (REBOXETINE) [Concomitant]
  6. CLONAZEPAM [Concomitant]

REACTIONS (6)
  - ASPIRATION BRONCHIAL [None]
  - BLOOD GLUCOSE INCREASED [None]
  - GLABELLAR REFLEX ABNORMAL [None]
  - NEUROLEPTIC MALIGNANT SYNDROME [None]
  - RESPIRATORY ALKALOSIS [None]
  - RESPIRATORY FAILURE [None]
